FAERS Safety Report 5490763-9 (Version None)
Quarter: 2007Q4

REPORT INFORMATION
  Report Type: 
  Country: None (occurrence: None)
  Receive Date: 20071019
  Receipt Date: 20071015
  Transmission Date: 20080405
  Serious: Yes (Other)
  Sender: FDA-Public Use
  Company Number: US-ASTRAZENECA-2007UW23990

PATIENT
  Age: 66 Year
  Sex: Female
  Weight: 56.7 kg

DRUGS (6)
  1. ARIMIDEX [Suspect]
     Indication: BREAST CANCER
     Route: 048
     Dates: start: 20070101
  2. ZYRTEC [Concomitant]
  3. LEXAPRO [Concomitant]
  4. INDERAL [Concomitant]
  5. NASACORT [Concomitant]
  6. DIAZEPAM [Concomitant]

REACTIONS (7)
  - AGITATION [None]
  - ALOPECIA [None]
  - FEELING HOT [None]
  - HEART RATE INCREASED [None]
  - MYCOBACTERIUM AVIUM COMPLEX INFECTION [None]
  - PAIN [None]
  - SKIN DISORDER [None]
